FAERS Safety Report 12196138 (Version 1)
Quarter: 2016Q1

REPORT INFORMATION
  Report Type: Other
  Country: US (occurrence: US)
  Receive Date: 20160321
  Receipt Date: 20160321
  Transmission Date: 20160526
  Serious: Yes (Other)
  Sender: FDA-Public Use
  Company Number: US-COL_22336_2016

PATIENT
  Age: 55 Year
  Sex: Female

DRUGS (6)
  1. TOPIRAMATE. [Concomitant]
     Active Substance: TOPIRAMATE
     Indication: WEIGHT DECREASED
     Dosage: 50MG/ONCE DAILY
     Route: 048
  2. METOCLOPARMIDA [Concomitant]
     Indication: WEIGHT DECREASED
     Dosage: 10 MG/TWICE DAILY/
     Route: 048
  3. XANAX [Concomitant]
     Active Substance: ALPRAZOLAM
     Indication: DEPRESSION
     Dosage: NI/PRN/
     Route: 048
  4. METFORMIN [Concomitant]
     Active Substance: METFORMIN HYDROCHLORIDE
     Indication: WEIGHT DECREASED
     Dosage: 500MG/ONCE DAILY/
     Route: 048
  5. COLGATE SENSITIVE WHITENING FRESH MINT [Suspect]
     Active Substance: POTASSIUM NITRATE\SODIUM FLUORIDE
     Indication: DENTAL DISORDER PROPHYLAXIS
     Dosage: PEA SIZED AMOUNT/1-2 TIMES DAILY/
     Route: 048
     Dates: start: 201512, end: 20160226
  6. WELLBUTRIN [Concomitant]
     Active Substance: BUPROPION HYDROCHLORIDE
     Indication: DEPRESSION
     Dosage: 300 MG/ONCE DAILY/
     Route: 048

REACTIONS (7)
  - Facial pain [Recovering/Resolving]
  - Gingival swelling [Recovering/Resolving]
  - Noninfective gingivitis [Recovering/Resolving]
  - Stomatitis [Recovering/Resolving]
  - Tooth abscess [Recovering/Resolving]
  - Oral pain [Recovering/Resolving]
  - Gingival pain [Recovering/Resolving]

NARRATIVE: CASE EVENT DATE: 2016
